FAERS Safety Report 9534754 (Version 2)
Quarter: 2013Q3

REPORT INFORMATION
  Report Type: Spontaneous
  Country: US (occurrence: US)
  Receive Date: 20130918
  Receipt Date: 20130918
  Transmission Date: 20140515
  Serious: No
  Sender: FDA-Public Use
  Company Number: US-PURDUE-USA-2011-0080236

PATIENT
  Sex: Male

DRUGS (3)
  1. BUTRANS [Suspect]
     Indication: PAIN
     Dosage: 5 MCG, SEE TEXT
     Route: 062
     Dates: start: 201111, end: 20120103
  2. BUTRANS [Interacting]
     Dosage: 20 MCG, Q1H
     Route: 062
     Dates: start: 20110103
  3. VICODIN [Interacting]
     Indication: BREAKTHROUGH PAIN
     Dosage: 5/500MG TAB; BID
     Dates: start: 2009

REACTIONS (6)
  - Product taste abnormal [Not Recovered/Not Resolved]
  - Drug ineffective [Not Recovered/Not Resolved]
  - Breakthrough pain [Unknown]
  - Product adhesion issue [Recovered/Resolved]
  - Extra dose administered [Recovered/Resolved]
  - Drug effect decreased [Unknown]
